FAERS Safety Report 24659406 (Version 1)
Quarter: 2024Q4

REPORT INFORMATION
  Report Type: Spontaneous
  Country: US (occurrence: None)
  Receive Date: 20241123
  Receipt Date: 20241123
  Transmission Date: 20250114
  Serious: Yes (Other)
  Sender: Public
  Company Number: None

PATIENT
  Age: 41 Year
  Sex: Female
  Weight: 58.5 kg

DRUGS (1)
  1. BUPROPION HYDROCHLORIDE [Suspect]
     Active Substance: BUPROPION HYDROCHLORIDE
     Indication: Smoking cessation therapy
     Dosage: 150 TABLETS DAILY ORAL
     Route: 048
     Dates: start: 20230701, end: 20241120

REACTIONS (9)
  - Hypertension [None]
  - Mania [None]
  - Cerebrovascular accident [None]
  - Thalamic stroke [None]
  - Cerebellar stroke [None]
  - Loss of employment [None]
  - Thrombosis [None]
  - Somnolence [None]
  - Asthenia [None]

NARRATIVE: CASE EVENT DATE: 20241113
